FAERS Safety Report 23786511 (Version 2)
Quarter: 2024Q2

REPORT INFORMATION
  Report Type: Report from Study
  Country: US (occurrence: US)
  Receive Date: 20240426
  Receipt Date: 20240501
  Transmission Date: 20240716
  Serious: No
  Sender: FDA-Public Use
  Company Number: US-ABBVIE-5733465

PATIENT
  Age: 34 Year
  Sex: Female
  Weight: 150 kg

DRUGS (1)
  1. HUMIRA [Suspect]
     Active Substance: ADALIMUMAB
     Indication: Hidradenitis
     Dosage: FORM STRENGTH UNITS: 80 MILLIGRAM
     Route: 058
     Dates: start: 20231001

REACTIONS (5)
  - Furuncle [Recovering/Resolving]
  - Pain [Recovering/Resolving]
  - Staphylococcal infection [Not Recovered/Not Resolved]
  - Swelling [Recovered/Resolved]
  - Erythema [Recovered/Resolved]

NARRATIVE: CASE EVENT DATE: 20240414
